FAERS Safety Report 6391167-7 (Version None)
Quarter: 2009Q4

REPORT INFORMATION
  Report Type: 
  Country: None (occurrence: None)
  Receive Date: 20091007
  Receipt Date: 20090923
  Transmission Date: 20100525
  Serious: Yes (Hospitalization)
  Sender: FDA-Public Use
  Company Number: DE-TYCO HEALTHCARE/MALLINCKRODT-T200901785

PATIENT

DRUGS (3)
  1. METHYLIN [Suspect]
  2. ATOMOXETINE HCL [Interacting]
  3. SIBUTRAMINE [Interacting]

REACTIONS (3)
  - AGITATION [None]
  - CONFUSIONAL STATE [None]
  - DRUG INTERACTION [None]
